FAERS Safety Report 9209170 (Version 9)
Quarter: 2015Q3

REPORT INFORMATION
  Report Type: Report from Study
  Country: JP (occurrence: JP)
  Receive Date: 20130404
  Receipt Date: 20150706
  Transmission Date: 20151125
  Serious: Yes (Life-Threatening, Hospitalization, Other)
  Sender: FDA-Public Use
  Company Number: PHHY2013JP028627

PATIENT
  Age: 39 Year
  Sex: Female
  Weight: 46 kg

DRUGS (25)
  1. ACZ885 [Suspect]
     Active Substance: CANAKINUMAB
     Dosage: 150 MG, UNK
     Route: 058
     Dates: start: 20121204, end: 20121204
  2. ACZ885 [Suspect]
     Active Substance: CANAKINUMAB
     Dosage: 150 MG, UNK
     Route: 058
     Dates: start: 20130604, end: 20130604
  3. ACZ885 [Suspect]
     Active Substance: CANAKINUMAB
     Dosage: 150 MG, UNK
     Route: 058
     Dates: start: 20140422, end: 20140422
  4. ACZ885 [Suspect]
     Active Substance: CANAKINUMAB
     Dosage: 300 MG, UNK
     Route: 058
     Dates: start: 20120612, end: 20120612
  5. ACZ885 [Suspect]
     Active Substance: CANAKINUMAB
     Dosage: 300 MG, UNK
     Route: 058
  6. ACZ885 [Suspect]
     Active Substance: CANAKINUMAB
     Dosage: 300 MG, UNK
     Route: 058
     Dates: start: 20131029, end: 20131029
  7. ACZ885 [Suspect]
     Active Substance: CANAKINUMAB
     Dosage: 300 MG, UNK
     Route: 058
     Dates: start: 20131210, end: 20131210
  8. ACZ885 [Suspect]
     Active Substance: CANAKINUMAB
     Dosage: 300 MG, UNK
     Route: 058
     Dates: start: 20140121, end: 20140121
  9. ACZ885 [Suspect]
     Active Substance: CANAKINUMAB
     Dosage: 150 MG, UNK
     Route: 058
     Dates: start: 20130108, end: 20130108
  10. ACZ885 [Suspect]
     Active Substance: CANAKINUMAB
     Dosage: 300 MG, UNK
     Route: 058
     Dates: start: 20140422, end: 20140422
  11. AMIODARONE [Concomitant]
     Active Substance: AMIODARONE
     Indication: VENTRICULAR TACHYCARDIA
     Dosage: 200 MG, QD
     Route: 065
  12. ACZ885 [Suspect]
     Active Substance: CANAKINUMAB
     Indication: CRYOPYRIN ASSOCIATED PERIODIC SYNDROME
     Dosage: 300 MG, (EVERY 4 WEKS)
     Route: 065
     Dates: start: 201204
  13. ACZ885 [Suspect]
     Active Substance: CANAKINUMAB
     Dosage: 300 MG, UNK
     Route: 058
     Dates: start: 20120807, end: 20120807
  14. ACZ885 [Suspect]
     Active Substance: CANAKINUMAB
     Dosage: 150 MG, UNK
     Route: 058
     Dates: start: 20121002, end: 20121002
  15. ACZ885 [Suspect]
     Active Substance: CANAKINUMAB
     Dosage: 150 MG, UNK
     Route: 058
     Dates: start: 20130304, end: 20130304
  16. ACZ885 [Suspect]
     Active Substance: CANAKINUMAB
     Dosage: 150 MG, UNK
     Route: 058
     Dates: start: 20130406, end: 20130406
  17. ACZ885 [Suspect]
     Active Substance: CANAKINUMAB
     Dosage: 150 MG, UNK
     Route: 058
     Dates: start: 20130507, end: 20130507
  18. ACZ885 [Suspect]
     Active Substance: CANAKINUMAB
     Dosage: 150 MG, UNK
     Route: 058
     Dates: start: 20130702, end: 20130702
  19. ACZ885 [Suspect]
     Active Substance: CANAKINUMAB
     Dosage: 300 MG, UNK
     Route: 058
     Dates: start: 20130806, end: 20130806
  20. CARVEDILOL. [Concomitant]
     Active Substance: CARVEDILOL
     Indication: CARDIAC FAILURE
     Dosage: 5 MG, QD
     Route: 065
  21. LOSARTAN. [Concomitant]
     Active Substance: LOSARTAN
     Indication: CARDIAC FAILURE
     Dosage: 12.5 MG, QD
     Route: 065
  22. ACZ885 [Suspect]
     Active Substance: CANAKINUMAB
     Dosage: 150 MG, UNK
     Route: 058
     Dates: start: 20121101, end: 20121101
  23. ACZ885 [Suspect]
     Active Substance: CANAKINUMAB
     Dosage: 150 MG, UNK
     Route: 058
     Dates: start: 20130205, end: 20130205
  24. ACZ885 [Suspect]
     Active Substance: CANAKINUMAB
     Dosage: 300 MG, UNK
     Route: 058
     Dates: start: 20130917, end: 20130917
  25. ACZ885 [Suspect]
     Active Substance: CANAKINUMAB
     Dosage: 300 MG, UNK
     Route: 058
     Dates: start: 20140311, end: 20140311

REACTIONS (13)
  - Vomiting [Recovered/Resolved]
  - Cryopyrin associated periodic syndrome [Recovered/Resolved]
  - Drug effect incomplete [Unknown]
  - Condition aggravated [Recovered/Resolved]
  - Vertigo [Recovering/Resolving]
  - Nausea [Recovered/Resolved]
  - Serum amyloid A protein increased [Unknown]
  - Ventricular fibrillation [Recovered/Resolved]
  - Herpes zoster [Recovered/Resolved]
  - Cardiac arrest [Recovered/Resolved]
  - Dizziness postural [Recovering/Resolving]
  - Cryopyrin associated periodic syndrome [Recovering/Resolving]
  - Nasopharyngitis [Recovered/Resolved]

NARRATIVE: CASE EVENT DATE: 20120908
